FAERS Safety Report 7035456-1 (Version None)
Quarter: 2010Q4

REPORT INFORMATION
  Report Type: 
  Country: None (occurrence: None)
  Receive Date: 20101008
  Receipt Date: 20101006
  Transmission Date: 20110411
  Serious: Yes (Hospitalization, Other)
  Sender: FDA-Public Use
  Company Number: US-PFIZER INC-2010086963

PATIENT
  Sex: Male
  Weight: 92.971 kg

DRUGS (1)
  1. CHANTIX [Suspect]
     Indication: SMOKING CESSATION THERAPY
     Dosage: UNK
     Route: 048
     Dates: start: 20100601, end: 20100705

REACTIONS (12)
  - AFFECTIVE DISORDER [None]
  - AGGRESSION [None]
  - ANGER [None]
  - ANXIETY [None]
  - BLOOD ETHANOL INCREASED [None]
  - DEPRESSION [None]
  - ILL-DEFINED DISORDER [None]
  - MOOD ALTERED [None]
  - OVERDOSE [None]
  - STRESS [None]
  - SUICIDAL IDEATION [None]
  - SUICIDE ATTEMPT [None]
